FAERS Safety Report 5035605-0 (Version None)
Quarter: 2006Q2

REPORT INFORMATION
  Report Type: 
  Country: None (occurrence: None)
  Receive Date: 20060627
  Receipt Date: 20060221
  Transmission Date: 20061013
  Serious: Yes (Other)
  Sender: FDA-Public Use
  Company Number: US-GLAXOSMITHKLINE-A0594625A

PATIENT
  Age: 67 Year
  Sex: Female
  Weight: 54.1 kg

DRUGS (4)
  1. AVANDIA [Suspect]
     Dosage: 2MG TWICE PER DAY
     Route: 048
     Dates: start: 20011101, end: 20060301
  2. SYNTHROID [Concomitant]
     Route: 048
  3. ZELNORM [Concomitant]
  4. ZETIA [Concomitant]

REACTIONS (13)
  - ABDOMINAL DISCOMFORT [None]
  - DRUG HYPERSENSITIVITY [None]
  - DRY MOUTH [None]
  - DYSPHAGIA [None]
  - EAR INFECTION [None]
  - EAR PAIN [None]
  - EATING DISORDER [None]
  - GASTROOESOPHAGEAL REFLUX DISEASE [None]
  - LYMPHADENOPATHY [None]
  - PHARYNGEAL ULCERATION [None]
  - PYREXIA [None]
  - SWOLLEN TONGUE [None]
  - TONGUE ULCERATION [None]
